FAERS Safety Report 10486210 (Version 1)
Quarter: 2014Q3

REPORT INFORMATION
  Report Type: Spontaneous
  Country: US (occurrence: None)
  Receive Date: 20140926
  Receipt Date: 20140926
  Transmission Date: 20150326
  Serious: Yes (Hospitalization)
  Sender: FDA-Public Use
  Company Number: US-001255N

PATIENT
  Age: 51 Year
  Sex: Female

DRUGS (3)
  1. VANCOMYCIN [Concomitant]
     Active Substance: VANCOMYCIN
  2. SOLUTIONS FOR PARENTERAL NUTRITION [Concomitant]
     Active Substance: AMINO ACIDS\DEXTROSE\ELECTROLYTES NOS
  3. GATTEX [Suspect]
     Active Substance: TEDUGLUTIDE\WATER
     Indication: SHORT-BOWEL SYNDROME
     Dosage: DF, ONCE DAILY
     Route: 058
     Dates: start: 20140316

REACTIONS (5)
  - Drug dose omission [None]
  - Abdominal pain [None]
  - Pyrexia [None]
  - Ascites [None]
  - Abdominal hernia [None]

NARRATIVE: CASE EVENT DATE: 201409
